FAERS Safety Report 7515091-9 (Version None)
Quarter: 2011Q2

REPORT INFORMATION
  Report Type: 
  Country: None (occurrence: None)
  Receive Date: 20110601
  Receipt Date: 20081117
  Transmission Date: 20111010
  Serious: Yes (Death, Hospitalization, Other)
  Sender: FDA-Public Use
  Company Number: US-BAYER-200838777NA

PATIENT
  Age: 69 Year
  Sex: Female
  Weight: 56.689 kg

DRUGS (18)
  1. FOSAMAX [Concomitant]
     Dosage: 70 MG, UNK
     Route: 048
  2. VERSED [Concomitant]
     Dosage: UNK
     Route: 042
     Dates: start: 20070919
  3. FORTAZ [Concomitant]
     Dosage: UNK
     Route: 042
     Dates: start: 20070919
  4. NITROGLYCERIN [Concomitant]
     Dosage: UNK
     Route: 042
     Dates: start: 20070919
  5. PROTAMINE SULFATE [Concomitant]
     Dosage: 300 MG, UNK
     Route: 042
     Dates: start: 20070919
  6. COUMADIN [Concomitant]
     Dosage: 6 MG, UNK
     Route: 048
  7. FUROSEMIDE [Concomitant]
     Dosage: 40 MG, QD
     Route: 048
  8. EPHEDRINE [Concomitant]
     Dosage: UNK
     Route: 042
     Dates: start: 20070919
  9. GLIPIZIDE [Concomitant]
     Dosage: 10 MG, QD
     Route: 048
  10. PAPAVERINE [Concomitant]
     Dosage: 300 MG, UNK
     Route: 042
     Dates: start: 20070919
  11. FOSINOPRIL SODIUM [Concomitant]
     Dosage: 10 MG, QD
     Route: 048
  12. HEPARIN [Concomitant]
     Dosage: 26000 U, UNK
     Route: 042
     Dates: start: 20070919
  13. LIDOCAINE [Concomitant]
     Dosage: UNK
     Route: 042
     Dates: start: 20070919
  14. TRASYLOL [Suspect]
     Indication: AORTIC VALVE REPLACEMENT
     Dosage: 200 ML, UNK
     Route: 042
     Dates: start: 20070919
  15. METFORMIN HCL [Concomitant]
     Dosage: 500 MG, TID
     Route: 048
  16. DIGOXIN [Concomitant]
     Dosage: 0.125 MG, UNK
     Route: 048
  17. VANCOMYCIN [Concomitant]
     Dosage: UNK
     Route: 042
     Dates: start: 20070919
  18. DOPAMINE HCL [Concomitant]
     Dosage: UNK
     Route: 042
     Dates: start: 20070919

REACTIONS (3)
  - CARDIAC FAILURE CONGESTIVE [None]
  - INJURY [None]
  - RENAL FAILURE [None]
